FAERS Safety Report 24906785 (Version 1)
Quarter: 2025Q1

REPORT INFORMATION
  Report Type: Spontaneous
  Country: US (occurrence: US)
  Receive Date: 20250130
  Receipt Date: 20250130
  Transmission Date: 20250409
  Serious: No
  Sender: SANOFI AVENTIS
  Company Number: US-SA-2025SA029060

PATIENT
  Age: 8 Year
  Sex: Female
  Weight: 19.09 kg

DRUGS (4)
  1. DUPIXENT [Suspect]
     Active Substance: DUPILUMAB
     Indication: Dermatitis atopic
     Dosage: 300 MG, Q4W
     Route: 058
  2. AQUAPHOR [WHITE SOFT PARAFFIN] [Concomitant]
  3. CHILDREN^S MULTIVITAMIN [Concomitant]
  4. CLARITHROMYCIN [Concomitant]
     Active Substance: CLARITHROMYCIN

REACTIONS (3)
  - Dermatitis atopic [Recovering/Resolving]
  - Dry skin [Recovering/Resolving]
  - Skin fissures [Recovering/Resolving]

NARRATIVE: CASE EVENT DATE: 20241101
